FAERS Safety Report 15821521 (Version 1)
Quarter: 2019Q1

REPORT INFORMATION
  Report Type: Spontaneous
  Country: US (occurrence: US)
  Receive Date: 20190114
  Receipt Date: 20190114
  Transmission Date: 20190417
  Serious: No
  Sender: FDA-Public Use
  Company Number: US-PFIZER INC-2019014535

PATIENT
  Age: 50 Year
  Sex: Male

DRUGS (2)
  1. GENOTROPIN MQ [Suspect]
     Active Substance: SOMATROPIN
     Indication: VITAMIN D DEFICIENCY
     Dosage: 0.8 MG, DAILY
  2. GENOTROPIN MQ [Suspect]
     Active Substance: SOMATROPIN
     Indication: TESTICULAR DISORDER

REACTIONS (4)
  - Bone density decreased [Unknown]
  - Product use in unapproved indication [Unknown]
  - Insulin-like growth factor decreased [Unknown]
  - Weight increased [Unknown]
